FAERS Safety Report 18372720 (Version 1)
Quarter: 2020Q4

REPORT INFORMATION
  Report Type: Spontaneous
  Country: GB (occurrence: GB)
  Receive Date: 20201012
  Receipt Date: 20201012
  Transmission Date: 20210114
  Serious: Yes (Other)
  Sender: FDA-Public Use
  Company Number: GB-OTSUKA-2020_019517

PATIENT
  Age: 43 Year
  Sex: Female
  Weight: 68 kg

DRUGS (2)
  1. JINARC [Suspect]
     Active Substance: TOLVAPTAN
     Dosage: 30 MG, QD
     Route: 048
     Dates: start: 20200220, end: 20200810
  2. JINARC [Suspect]
     Active Substance: TOLVAPTAN
     Indication: CONGENITAL CYSTIC KIDNEY DISEASE
     Dosage: 90 MG, QD
     Route: 048
     Dates: start: 20200220, end: 20200810

REACTIONS (6)
  - Transaminases increased [Recovered/Resolved]
  - Blood uric acid increased [Not Recovered/Not Resolved]
  - Blood potassium increased [Recovering/Resolving]
  - Blood sodium increased [Recovered/Resolved]
  - Blood urea increased [Recovered/Resolved]
  - Blood creatinine increased [Not Recovered/Not Resolved]

NARRATIVE: CASE EVENT DATE: 20200515
